FAERS Safety Report 25577840 (Version 1)
Quarter: 2025Q3

REPORT INFORMATION
  Report Type: Spontaneous
  Country: US (occurrence: US)
  Receive Date: 20250718
  Receipt Date: 20250718
  Transmission Date: 20251021
  Serious: No
  Sender: NOVO NORDISK
  Company Number: US-NOVOPROD-1382012

PATIENT
  Age: 75 Year
  Sex: Female

DRUGS (2)
  1. RYBELSUS [Suspect]
     Active Substance: SEMAGLUTIDE
     Route: 048
  2. RYBELSUS [Suspect]
     Active Substance: SEMAGLUTIDE
     Indication: Type 2 diabetes mellitus
     Route: 048
     Dates: start: 202410

REACTIONS (3)
  - Oral discomfort [Not Recovered/Not Resolved]
  - Glossitis [Not Recovered/Not Resolved]
  - Glossodynia [Unknown]

NARRATIVE: CASE EVENT DATE: 20241001
